FAERS Safety Report 6416116-4 (Version None)
Quarter: 2009Q4

REPORT INFORMATION
  Report Type: 
  Country: None (occurrence: None)
  Receive Date: 20091027
  Receipt Date: 20091022
  Transmission Date: 20100525
  Serious: Yes (Hospitalization)
  Sender: FDA-Public Use
  Company Number: DE-MERCK-0909DEU00052

PATIENT
  Sex: Female

DRUGS (1)
  1. JANUVIA [Suspect]
     Route: 048

REACTIONS (2)
  - ADVERSE EVENT [None]
  - OEDEMA [None]
